FAERS Safety Report 7762628-0 (Version None)
Quarter: 2011Q3

REPORT INFORMATION
  Report Type: 
  Country: None (occurrence: None)
  Receive Date: 20110920
  Receipt Date: 20110908
  Transmission Date: 20111222
  Serious: Yes (Hospitalization)
  Sender: FDA-Public Use
  Company Number: SI-GLAXOSMITHKLINE-B0746750A

PATIENT
  Sex: Male
  Weight: 80 kg

DRUGS (3)
  1. PAROXETINE HCL [Suspect]
     Indication: ANXIETY
     Dosage: 45MG PER DAY
     Route: 048
     Dates: start: 20101203, end: 20110801
  2. PAROXETINE [Suspect]
     Indication: ANXIETY
     Dosage: 1.5MG PER DAY
     Route: 048
     Dates: start: 20100729, end: 20101203
  3. LAMICTAL [Suspect]
     Indication: AFFECTIVE DISORDER
     Dosage: 250MG PER DAY
     Route: 048
     Dates: start: 20091015, end: 20110801

REACTIONS (2)
  - JAUNDICE [None]
  - ABDOMINAL PAIN [None]
